FAERS Safety Report 21891510 (Version 2)
Quarter: 2023Q1

REPORT INFORMATION
  Report Type: Spontaneous
  Country: US (occurrence: US)
  Receive Date: 20230120
  Receipt Date: 20230131
  Transmission Date: 20230418
  Serious: Yes (Other)
  Sender: FDA-Public Use
  Company Number: US-ALVOGEN-2023088967

PATIENT
  Sex: Female

DRUGS (16)
  1. MACROBID [Suspect]
     Active Substance: NITROFURANTOIN\NITROFURANTOIN MONOHYDRATE
     Indication: Product used for unknown indication
     Dosage: NOTES: 03-JUN-2019
  2. CLINDAMYCIN [Suspect]
     Active Substance: CLINDAMYCIN
     Indication: Product used for unknown indication
     Dosage: NOTES: 31-MAY-2019
  3. OXYCODONE [Suspect]
     Active Substance: OXYCODONE
     Indication: Product used for unknown indication
     Dosage: NOTES: 03-APR-2018
  4. PREMARIN [Suspect]
     Active Substance: ESTROGENS, CONJUGATED
     Indication: Menopausal symptoms
     Dosage: AT BED TIME?QTY DISPENSE: 90 (NINETY) TABLET?REFILLS: 4 (FOUR)?STOP DATE: 20-MAR-2023
     Dates: start: 20201220
  5. CLARITHROMYCIN [Suspect]
     Active Substance: CLARITHROMYCIN
     Indication: Product used for unknown indication
     Dosage: NOTES: 30-APR-2018
  6. DOXYCYCLINE [Suspect]
     Active Substance: DOXYCYCLINE
     Indication: Product used for unknown indication
     Dosage: NOTES: 30-APR-2018
  7. LEVOFLOXACIN [Suspect]
     Active Substance: LEVOFLOXACIN
     Indication: Product used for unknown indication
     Dosage: NOTES: 30-APR-2018
  8. CODEINE [Suspect]
     Active Substance: CODEINE
     Indication: Product used for unknown indication
     Dosage: NOTES: 30-APR-2018
  9. DARVON [Suspect]
     Active Substance: PROPOXYPHENE HYDROCHLORIDE
     Indication: Tachycardia
     Dosage: NOTES: 30-APR-2018
  10. HYDROXYZINE [Suspect]
     Active Substance: HYDROXYZINE HYDROCHLORIDE
     Indication: Product used for unknown indication
     Dosage: NOTES: 30-APR-2018
  11. LOSARTAN [Suspect]
     Active Substance: LOSARTAN
     Indication: Product used for unknown indication
     Dosage: NOTES: 21-MAY-2018
  12. NORVASC [Suspect]
     Active Substance: AMLODIPINE BESYLATE
     Indication: Product used for unknown indication
     Dosage: NOTES: 03-APR-2018
  13. PREDNISONE [Suspect]
     Active Substance: PREDNISONE
     Indication: Product used for unknown indication
     Dosage: NOTES: 03-APR-2019
  14. PROPOFOL [Suspect]
     Active Substance: PROPOFOL
     Indication: Product used for unknown indication
     Dosage: NOTES: 03-JUN-2019
  15. UNSPECIFIED INGREDIENT [Suspect]
     Active Substance: UNSPECIFIED INGREDIENT
     Indication: Product used for unknown indication
     Dosage: NOTES: 03-APR-2018
  16. ULTRACET [Suspect]
     Active Substance: ACETAMINOPHEN\TRAMADOL HYDROCHLORIDE
     Indication: Product used for unknown indication
     Dosage: NOTES: 04/30/2018

REACTIONS (13)
  - Acute kidney injury [Unknown]
  - Anaphylactic reaction [Unknown]
  - Angioedema [Unknown]
  - Palpitations [Unknown]
  - Rash [Unknown]
  - Vomiting [Unknown]
  - Migraine [Unknown]
  - Dehydration [Unknown]
  - Cough [Unknown]
  - Nausea [Unknown]
  - Headache [Unknown]
  - Drug hypersensitivity [Unknown]
  - Tachycardia [Unknown]
